FAERS Safety Report 25131513 (Version 2)
Quarter: 2025Q2

REPORT INFORMATION
  Report Type: Spontaneous
  Country: US (occurrence: US)
  Receive Date: 20250327
  Receipt Date: 20250404
  Transmission Date: 20250717
  Serious: No
  Sender: MERCK SHARP AND DOHME
  Company Number: US-009507513-2267245

PATIENT
  Age: 38 Year
  Sex: Female

DRUGS (2)
  1. DAPTOMYCIN [Suspect]
     Active Substance: DAPTOMYCIN
     Indication: Staphylococcal bacteraemia
     Route: 065
  2. CEFTAROLINE [Concomitant]
     Active Substance: CEFTAROLINE
     Indication: Bacteraemia

REACTIONS (1)
  - Drug ineffective [Unknown]
